FAERS Safety Report 4924399-2 (Version None)
Quarter: 2006Q1

REPORT INFORMATION
  Report Type: 
  Country: None (occurrence: None)
  Receive Date: 20060221
  Receipt Date: 20060207
  Transmission Date: 20060701
  Serious: Yes (Hospitalization, Other)
  Sender: FDA-Public Use
  Company Number: 2005098874

PATIENT
  Age: 65 Year
  Sex: Male
  Weight: 77 kg

DRUGS (7)
  1. SUTENT [Suspect]
     Indication: NON-SMALL CELL LUNG CANCER
     Dosage: 50 MG (50 MG, 1 IN 1 D), ORAL
     Route: 048
     Dates: start: 20050602, end: 20050630
  2. TESSALON [Concomitant]
  3. OXYCODONE HCL [Concomitant]
  4. NEURONTIN [Concomitant]
  5. SINGULAIR [Concomitant]
  6. PREDNISONE TAB [Concomitant]
  7. SCOPALAMINE (HYOSCINE) [Concomitant]

REACTIONS (22)
  - AORTIC VALVE SCLEROSIS [None]
  - ARRHYTHMIA [None]
  - ASPIRATION [None]
  - ATELECTASIS [None]
  - BLOOD PRESSURE SYSTOLIC INCREASED [None]
  - BONE PAIN [None]
  - BRONCHOSTENOSIS [None]
  - CARDIAC DISORDER [None]
  - DIASTOLIC DYSFUNCTION [None]
  - DISEASE PROGRESSION [None]
  - DYSPNOEA [None]
  - FATIGUE [None]
  - INFECTION [None]
  - LIVER DISORDER [None]
  - MITRAL VALVE INCOMPETENCE [None]
  - PNEUMONIA [None]
  - PNEUMONITIS [None]
  - PULMONARY EMBOLISM [None]
  - SINUS TACHYCARDIA [None]
  - TRACHEAL DISORDER [None]
  - TRICUSPID VALVE INCOMPETENCE [None]
  - WHEEZING [None]
